FAERS Safety Report 12676741 (Version 2)
Quarter: 2017Q2

REPORT INFORMATION
  Report Type: Spontaneous
  Country: US (occurrence: US)
  Receive Date: 20160823
  Receipt Date: 20170606
  Transmission Date: 20170830
  Serious: No
  Sender: FDA-Public Use
  Company Number: US-009507513-1608USA005154

PATIENT
  Sex: Female

DRUGS (3)
  1. INTRON A [Suspect]
     Active Substance: INTERFERON ALFA-2B
     Indication: PRODUCT USED FOR UNKNOWN INDICATION
     Dosage: 3 MU, TIW
     Route: 058
     Dates: start: 20151103, end: 20160609
  2. XOLAIR [Concomitant]
     Active Substance: OMALIZUMAB
     Dosage: UNK
  3. INTRON A [Suspect]
     Active Substance: INTERFERON ALFA-2B
     Dosage: 18 MU 3 TIMES PER WEEK
     Route: 058
     Dates: start: 20170410

REACTIONS (3)
  - Drug dose omission [Unknown]
  - Influenza like illness [Unknown]
  - Memory impairment [Unknown]

NARRATIVE: CASE EVENT DATE: 2016
